FAERS Safety Report 12770217 (Version 2)
Quarter: 2016Q3

REPORT INFORMATION
  Report Type: Spontaneous
  Country: US (occurrence: US)
  Receive Date: 20160922
  Receipt Date: 20160923
  Transmission Date: 20161109
  Serious: No
  Sender: FDA-Public Use
  Company Number: US-PFIZER INC-2016442637

PATIENT
  Sex: Male

DRUGS (1)
  1. EFFEXOR XR [Suspect]
     Active Substance: VENLAFAXINE HYDROCHLORIDE
     Dosage: 150MG, TABLET, TWICE A DAY

REACTIONS (6)
  - Sleep disorder [Unknown]
  - Confusional state [Unknown]
  - Drug effect delayed [Unknown]
  - Prescribed overdose [Unknown]
  - Bedridden [Unknown]
  - Feeling abnormal [Unknown]
